FAERS Safety Report 20196498 (Version 2)
Quarter: 2021Q4

REPORT INFORMATION
  Report Type: Spontaneous
  Country: JP (occurrence: JP)
  Receive Date: 20211216
  Receipt Date: 20211220
  Transmission Date: 20220303
  Serious: Yes (Other)
  Sender: FDA-Public Use
  Company Number: JP-MSD-M2021-29523

PATIENT
  Age: 50 Year
  Sex: Female

DRUGS (3)
  1. BELSOMRA [Suspect]
     Active Substance: SUVOREXANT
     Indication: Insomnia
     Dosage: 20 MILLIGRAM, QD
     Route: 048
     Dates: start: 20211101, end: 20211114
  2. CLARITHROMYCIN [Suspect]
     Active Substance: CLARITHROMYCIN
     Dosage: UNK
     Route: 048
  3. BROTIZOLAM [Concomitant]
     Active Substance: BROTIZOLAM
     Dosage: UNK, PRN
     Route: 048

REACTIONS (5)
  - Suicidal ideation [Not Recovered/Not Resolved]
  - Depressive symptom [Not Recovered/Not Resolved]
  - Tension headache [Not Recovered/Not Resolved]
  - Dizziness [Not Recovered/Not Resolved]
  - Labelled drug-drug interaction issue [Unknown]

NARRATIVE: CASE EVENT DATE: 20211101
